FAERS Safety Report 8090708-1 (Version None)
Quarter: 2012Q1

REPORT INFORMATION
  Report Type: 
  Country: None (occurrence: None)
  Receive Date: 20120130
  Receipt Date: 20120123
  Transmission Date: 20120608
  Serious: Yes (Hospitalization)
  Sender: FDA-Public Use
  Company Number: CG-MERCK-1201USA03075

PATIENT
  Age: 45 Year
  Sex: Male
  Weight: 67 kg

DRUGS (1)
  1. STROMECTOL [Suspect]
     Indication: ONCHOCERCIASIS
     Route: 048
     Dates: start: 20111115, end: 20111115

REACTIONS (9)
  - CONJUNCTIVAL HAEMORRHAGE [None]
  - ABDOMINAL PAIN UPPER [None]
  - PYREXIA [None]
  - HEADACHE [None]
  - HYPOTENSION [None]
  - DEPRESSED LEVEL OF CONSCIOUSNESS [None]
  - ARTHRALGIA [None]
  - ENCEPHALOPATHY [None]
  - ASTHENIA [None]
